FAERS Safety Report 5405534-9 (Version None)
Quarter: 2007Q3

REPORT INFORMATION
  Report Type: 
  Country: None (occurrence: None)
  Receive Date: 20070803
  Receipt Date: 20070724
  Transmission Date: 20080115
  Serious: Yes (Other)
  Sender: FDA-Public Use
  Company Number: GR-PFIZER INC-2007061983

PATIENT
  Sex: Female

DRUGS (1)
  1. CLINDAMYCIN HCL [Suspect]
     Indication: TOOTH INFECTION
     Dates: start: 20070719, end: 20070724

REACTIONS (1)
  - VERTIGO [None]
